FAERS Safety Report 19593622 (Version 1)
Quarter: 2021Q3

REPORT INFORMATION
  Report Type: Spontaneous
  Country: DE (occurrence: DE)
  Receive Date: 20210722
  Receipt Date: 20210722
  Transmission Date: 20211014
  Serious: Yes (Hospitalization)
  Sender: FDA-Public Use
  Company Number: DE-ACCORD-232325

PATIENT
  Age: 59 Year
  Sex: Male

DRUGS (3)
  1. IBUPROFEN/IBUPROFEN ARGININE/IBUPROFEN LYSINATE/IBUPROFEN MEGLUMINE/IBUPROFEN PICONOL/IBUPROFEN SODI [Concomitant]
     Dosage: 400 MG, IF NECESSARY, TABLETS
     Route: 048
  2. RAMIPRIL. [Suspect]
     Active Substance: RAMIPRIL
     Indication: PRODUCT USED FOR UNKNOWN INDICATION
     Dosage: 2.5 MG, 1?0?0?0, TABLET
     Route: 048
  3. PANTOPRAZOLE [Concomitant]
     Active Substance: PANTOPRAZOLE
     Dosage: 40 MG, 1?0?0?0, TABLET
     Route: 048

REACTIONS (1)
  - Anaphylactic reaction [Recovered/Resolved]

NARRATIVE: CASE EVENT DATE: 20210323
